FAERS Safety Report 22331763 (Version 1)
Quarter: 2023Q2

REPORT INFORMATION
  Report Type: Spontaneous
  Country: US (occurrence: None)
  Receive Date: 20230516
  Receipt Date: 20230516
  Transmission Date: 20230722
  Serious: Yes (Other)
  Sender: FDA-Public Use
  Company Number: None

PATIENT
  Age: 35 Year
  Sex: Female
  Weight: 92.7 kg

DRUGS (1)
  1. AIMOVIG [Suspect]
     Active Substance: ERENUMAB-AOOE
     Indication: Migraine
     Dosage: OTHER QUANTITY : 1 INJECTION(S);?OTHER FREQUENCY : 1/MONTH;?
     Route: 058
     Dates: start: 20230421

REACTIONS (7)
  - Fatigue [None]
  - Somnolence [None]
  - Hot flush [None]
  - Cold sweat [None]
  - Nausea [None]
  - Migraine with aura [None]
  - Panic attack [None]

NARRATIVE: CASE EVENT DATE: 20230422
